FAERS Safety Report 25988297 (Version 1)
Quarter: 2025Q4

REPORT INFORMATION
  Report Type: Spontaneous
  Country: US (occurrence: US)
  Receive Date: 20251103
  Receipt Date: 20251103
  Transmission Date: 20260118
  Serious: No
  Sender: IPSEN BIOPHARMACEUTICALS, INC.
  Company Number: US-IPSEN Group, Research and Development-2025-26825

PATIENT
  Age: 66 Year
  Sex: Male
  Weight: 70.3 kg

DRUGS (11)
  1. TAZVERIK [Suspect]
     Active Substance: TAZEMETOSTAT HYDROBROMIDE
     Indication: Follicular lymphoma
     Route: 048
     Dates: start: 20250324
  2. CARAFATE [Concomitant]
     Active Substance: SUCRALFATE
  3. DIAZEPAM [Concomitant]
     Active Substance: DIAZEPAM
  4. ESCITALOPRAM [Concomitant]
     Active Substance: ESCITALOPRAM OXALATE
  5. MELATONIN [Concomitant]
     Active Substance: MELATONIN
  6. OMEPRAZOLE [Concomitant]
     Active Substance: OMEPRAZOLE
  7. ONDANSETRON [Concomitant]
     Active Substance: ONDANSETRON
  8. SUCRALFATE [Concomitant]
     Active Substance: SUCRALFATE
  9. TRAMADOL [Concomitant]
     Active Substance: TRAMADOL
  10. VITAMIN D [Concomitant]
     Active Substance: VITAMIN D NOS
  11. XANAX [Concomitant]
     Active Substance: ALPRAZOLAM

REACTIONS (1)
  - Bacterial infection [Recovering/Resolving]
